FAERS Safety Report 8203474-3 (Version None)
Quarter: 2012Q1

REPORT INFORMATION
  Report Type: 
  Country: None (occurrence: None)
  Receive Date: 20120313
  Receipt Date: 20120302
  Transmission Date: 20120608
  Serious: Yes (Hospitalization)
  Sender: FDA-Public Use
  Company Number: US-BIOGENIDEC-2012BI007784

PATIENT
  Age: 50 Year
  Sex: Male

DRUGS (9)
  1. GLUCOSAMINE [Concomitant]
     Indication: SUPPLEMENTATION THERAPY
  2. CODEINE SULFATE [Concomitant]
     Indication: PAIN
  3. TESTOSTERONE [Concomitant]
     Indication: SEXUAL DYSFUNCTION
     Dates: start: 20111201
  4. ZANAFLEX [Concomitant]
     Indication: MUSCLE SPASTICITY
     Route: 048
     Dates: start: 20110101
  5. TYSABRI [Suspect]
     Indication: MULTIPLE SCLEROSIS
     Route: 042
     Dates: start: 20080122, end: 20110914
  6. GILENYA [Concomitant]
     Indication: RELAPSING-REMITTING MULTIPLE SCLEROSIS
     Route: 048
     Dates: start: 20111114, end: 20120301
  7. METFORMIN HCL [Concomitant]
     Indication: DIABETES MELLITUS
     Dates: start: 20120101
  8. SAXAGLIPTIN [Concomitant]
     Indication: DIABETES MELLITUS
  9. WELLBUTRIN [Concomitant]
     Indication: DEPRESSION
     Dates: start: 20110901

REACTIONS (2)
  - MULTIPLE SCLEROSIS RELAPSE [None]
  - TYPE 2 DIABETES MELLITUS [None]
